FAERS Safety Report 13587425 (Version 1)
Quarter: 2017Q2

REPORT INFORMATION
  Report Type: Report from Study
  Country: US (occurrence: US)
  Receive Date: 20170526
  Receipt Date: 20170526
  Transmission Date: 20170830
  Serious: Yes (Other)
  Sender: FDA-Public Use
  Company Number: US-ACTELION-A-NJ2017-150641

PATIENT
  Age: 69 Year
  Sex: Male
  Weight: 64.85 kg

DRUGS (2)
  1. NIFEDIPINE. [Concomitant]
     Active Substance: NIFEDIPINE
  2. VELETRI [Suspect]
     Active Substance: EPOPROSTENOL
     Indication: PULMONARY ARTERIAL HYPERTENSION
     Dosage: 9 NG/KG, PER MIN
     Route: 042

REACTIONS (5)
  - Presyncope [Recovering/Resolving]
  - Flushing [Unknown]
  - Dialysis [Recovering/Resolving]
  - Dizziness [Recovering/Resolving]
  - Hyperhidrosis [Unknown]

NARRATIVE: CASE EVENT DATE: 201705
